FAERS Safety Report 5714811-3 (Version None)
Quarter: 2008Q2

REPORT INFORMATION
  Report Type: 
  Country: None (occurrence: None)
  Receive Date: 20080423
  Receipt Date: 20080418
  Transmission Date: 20081010
  Serious: Yes (Other)
  Sender: FDA-Public Use
  Company Number: US-ALLERGAN-0804642US

PATIENT
  Age: 27 Year
  Sex: Female

DRUGS (1)
  1. RESTASIS [Suspect]
     Indication: DRUG USE FOR UNKNOWN INDICATION
     Dosage: 1 GTT, Q12H
     Route: 047
     Dates: start: 20080301, end: 20080401

REACTIONS (2)
  - CHEST DISCOMFORT [None]
  - DYSPNOEA [None]
